FAERS Safety Report 6329610-1 (Version None)
Quarter: 2009Q3

REPORT INFORMATION
  Report Type: 
  Country: None (occurrence: None)
  Receive Date: 20090825
  Receipt Date: 20090825
  Transmission Date: 20100115
  Serious: Yes (Other)
  Sender: FDA-Public Use
  Company Number: None

PATIENT
  Age: 59 Year
  Sex: Female
  Weight: 100.2449 kg

DRUGS (1)
  1. AMBIEN CR [Suspect]
     Indication: POST-TRAUMATIC STRESS DISORDER
     Dosage: 1 TAB Q HS PO
     Route: 048
     Dates: start: 20090510, end: 20090817

REACTIONS (2)
  - AMNESIA [None]
  - SOMNAMBULISM [None]
